FAERS Safety Report 6553696-2 (Version None)
Quarter: 2010Q1

REPORT INFORMATION
  Report Type: 
  Country: None (occurrence: None)
  Receive Date: 20100122
  Receipt Date: 20100106
  Transmission Date: 20100710
  Serious: Yes (Hospitalization, Other)
  Sender: FDA-Public Use
  Company Number: 2009AC000524

PATIENT
  Sex: Female

DRUGS (14)
  1. DIGOXIN [Suspect]
     Dosage: 0.125 MG;QD;PO
     Route: 048
     Dates: end: 20080401
  2. DARVOCET [Concomitant]
  3. KEFLEX [Concomitant]
  4. LASIX [Concomitant]
  5. BISPROLOL [Concomitant]
  6. LISINOPRIL [Concomitant]
  7. LOVASTATIN [Concomitant]
  8. ZETIA [Concomitant]
  9. WELLBUTRIN [Concomitant]
  10. MAGNESIUM OXIDE [Concomitant]
  11. ISOSORBIDE [Concomitant]
  12. DIPHENHYDRAMINE [Concomitant]
  13. COLCHICINE [Concomitant]
  14. CALCIUM [Concomitant]

REACTIONS (1)
  - CARDIAC FAILURE CONGESTIVE [None]
